FAERS Safety Report 14666129 (Version 2)
Quarter: 2018Q2

REPORT INFORMATION
  Report Type: Report from Study
  Country: US (occurrence: US)
  Receive Date: 20180321
  Receipt Date: 20180418
  Transmission Date: 20180711
  Serious: No
  Sender: FDA-Public Use
  Company Number: US-ELI_LILLY_AND_COMPANY-US201803006970

PATIENT
  Age: 77 Year
  Sex: Female

DRUGS (4)
  1. METFORMIN [Concomitant]
     Active Substance: METFORMIN HYDROCHLORIDE
     Indication: TYPE 2 DIABETES MELLITUS
  2. INSULIN, LISPRO [Suspect]
     Active Substance: INSULIN LISPRO
     Indication: TYPE 2 DIABETES MELLITUS
     Dosage: 14 U, EACH MORNING(AT BREAKFAST)
     Route: 058
     Dates: start: 20180310
  3. INSULIN, LISPRO [Suspect]
     Active Substance: INSULIN LISPRO
     Dosage: 16 U, EACH EVENING(AT DINNER)
     Route: 058
     Dates: start: 20180310
  4. LANTUS [Concomitant]
     Active Substance: INSULIN GLARGINE
     Indication: TYPE 2 DIABETES MELLITUS
     Dosage: UNK, EACH EVENING

REACTIONS (4)
  - Blood glucose increased [Recovered/Resolved]
  - Drug dose omission [Recovered/Resolved]
  - Drug ineffective [Unknown]
  - Blood glucose increased [Recovered/Resolved]

NARRATIVE: CASE EVENT DATE: 20180314
